FAERS Safety Report 21183049 (Version 2)
Quarter: 2022Q3

REPORT INFORMATION
  Report Type: Report from Study
  Country: IE (occurrence: IE)
  Receive Date: 20220808
  Receipt Date: 20220831
  Transmission Date: 20221027
  Serious: Yes (Other)
  Sender: FDA-Public Use
  Company Number: IE-NOVARTISPH-NVSC2022IE175123

PATIENT
  Sex: Male

DRUGS (1)
  1. COSENTYX [Suspect]
     Active Substance: SECUKINUMAB
     Indication: Psoriatic arthropathy
     Dosage: 300 MG
     Route: 058
     Dates: start: 20220603

REACTIONS (7)
  - COVID-19 [Recovering/Resolving]
  - Illness [Recovering/Resolving]
  - Asthenia [Recovering/Resolving]
  - Lower respiratory tract infection [Recovering/Resolving]
  - Candida infection [Recovering/Resolving]
  - Fatigue [Unknown]
  - Drug ineffective [Unknown]
